FAERS Safety Report 8770934 (Version 1)
Quarter: 2012Q4

REPORT INFORMATION
  Report Type: 
  Country: US (occurrence: US)
  Receive Date: 20120906
  Receipt Date: 20120906
  Transmission Date: 20130627
  Serious: Yes (Hospitalization)
  Sender: FDA-Public Use
  Company Number: US-BAYER-2012-091126

PATIENT
  Age: 45 Year
  Sex: Female

DRUGS (14)
  1. YAZ [Suspect]
     Indication: CONTRACEPTION
     Dosage: UNK
  2. ALBUTEROL [Concomitant]
     Dosage: two puffs as needed
     Route: 055
  3. EFFEXOR XR [Concomitant]
     Dosage: 75 mg, daily
     Route: 048
  4. NAPRELAN [Concomitant]
     Dosage: 750 mg, daily
     Route: 048
  5. SINGULAIR [Concomitant]
     Dosage: 10 mg, HS
     Route: 048
  6. TYLENOL [PARACETAMOL] [Concomitant]
     Indication: PAIN
     Dosage: 650 mg, UNK
     Route: 048
  7. TYLENOL [PARACETAMOL] [Concomitant]
     Indication: PYREXIA
  8. ASA [Concomitant]
     Dosage: 325 mg, daily times 10
     Route: 048
  9. CELEBREX [Concomitant]
     Dosage: 200 mg, UNK
     Route: 048
  10. MORPHINE [Concomitant]
  11. PERCOCET [Concomitant]
     Indication: PAIN
     Dosage: 5/325 1-2 every 4-6 hours
     Route: 048
  12. VANCOMYCIN [Concomitant]
     Dosage: 1.5 g, UNK
     Route: 042
  13. XYLOCAINE WITH EPINEPHRINE [Concomitant]
  14. PROVENTIL [Concomitant]
     Dosage: two puffs every 4 p.r.n. (as needed)

REACTIONS (1)
  - Deep vein thrombosis [None]
